FAERS Safety Report 9099008 (Version 2)
Quarter: 2013Q2

REPORT INFORMATION
  Report Type: Report from Study
  Country: DE (occurrence: DE)
  Receive Date: 20130214
  Receipt Date: 20130610
  Transmission Date: 20140414
  Serious: Yes (Hospitalization)
  Sender: FDA-Public Use
  Company Number: DE-UCBSA-077975

PATIENT
  Age: 55 Year
  Sex: Male

DRUGS (5)
  1. VIMPAT [Suspect]
     Indication: PARTIAL SEIZURES
     Dosage: DAILY DOSE: 400MG/DAY
     Dates: start: 2011, end: 20110815
  2. VIMPAT [Suspect]
     Indication: PARTIAL SEIZURES
     Dosage: DAILY DOSE: 50MG/DAY
     Dates: start: 20110203, end: 2011
  3. VALPROATE [Concomitant]
     Indication: EPILEPSY
     Dosage: DAILY DOSE: 1250MG/DAY
  4. VALPROATE [Concomitant]
     Indication: EPILEPSY
     Dosage: DAILY DOSE: 1500MG/DAY
  5. CLOBAZAM [Concomitant]
     Indication: EPILEPSY

REACTIONS (2)
  - Convulsion [Unknown]
  - Drug ineffective [Recovered/Resolved]
